FAERS Safety Report 7461179-0 (Version None)
Quarter: 2011Q2

REPORT INFORMATION
  Report Type: 
  Country: None (occurrence: None)
  Receive Date: 20110505
  Receipt Date: 20110426
  Transmission Date: 20111010
  Serious: Yes (Hospitalization, Other)
  Sender: FDA-Public Use
  Company Number: US-ASTRAZENECA-2011SE03174

PATIENT
  Age: 48 Year
  Sex: Male
  Weight: 77.1 kg

DRUGS (8)
  1. SEROQUEL [Suspect]
     Indication: MOOD SWINGS
     Route: 048
     Dates: start: 20060101
  2. SEROQUEL [Suspect]
     Indication: DEPRESSION
     Route: 048
     Dates: start: 20060101
  3. CELEXA [Concomitant]
     Indication: DEPRESSION
     Route: 048
  4. DEPAKOTE [Concomitant]
     Indication: MIGRAINE
     Route: 065
  5. AMBIEN [Concomitant]
  6. SEROQUEL [Suspect]
     Indication: SLEEP DISORDER
     Route: 048
     Dates: start: 20060101
  7. SEROQUEL [Suspect]
     Indication: ANXIETY
     Route: 048
     Dates: start: 20060101
  8. REMERON [Concomitant]
     Route: 048

REACTIONS (4)
  - FALL [None]
  - KNEE OPERATION [None]
  - SURGERY [None]
  - INTERVERTEBRAL DISC PROTRUSION [None]
